FAERS Safety Report 10524464 (Version 1)
Quarter: 2014Q4

REPORT INFORMATION
  Report Type: Spontaneous
  Country: US (occurrence: None)
  Receive Date: 20141015
  Receipt Date: 20141015
  Transmission Date: 20150528
  Serious: Yes (Disabling)
  Sender: FDA-Public Use
  Company Number: None

PATIENT
  Age: 33 Year
  Sex: Female
  Weight: 58.97 kg

DRUGS (1)
  1. CIPROFLOXACIN 500MG BAYER [Suspect]
     Active Substance: CIPROFLOXACIN
     Indication: URINARY TRACT INFECTION
     Route: 048
     Dates: start: 20140529, end: 20140531

REACTIONS (8)
  - Gait disturbance [None]
  - Hyperaesthesia [None]
  - Paraesthesia [None]
  - Pain in extremity [None]
  - Sunburn [None]
  - Tendon disorder [None]
  - Activities of daily living impaired [None]
  - Pain [None]

NARRATIVE: CASE EVENT DATE: 20140601
